FAERS Safety Report 20266252 (Version 1)
Quarter: 2021Q4

REPORT INFORMATION
  Report Type: Spontaneous
  Country: US (occurrence: None)
  Receive Date: 20211231
  Receipt Date: 20211231
  Transmission Date: 20220303
  Serious: No
  Sender: FDA-Public Use
  Company Number: 2021A851585

PATIENT
  Sex: Female
  Weight: 85.3 kg

DRUGS (1)
  1. FARXIGA [Suspect]
     Active Substance: DAPAGLIFLOZIN PROPANEDIOL
     Indication: Type 2 diabetes mellitus
     Route: 048

REACTIONS (6)
  - Drug hypersensitivity [Unknown]
  - Atrioventricular block [Unknown]
  - Hallucination [Recovered/Resolved]
  - Somnolence [Recovered/Resolved]
  - Blood glucose decreased [Unknown]
  - Amnesia [Unknown]
